FAERS Safety Report 10093038 (Version 1)
Quarter: 2014Q2

REPORT INFORMATION
  Report Type: Spontaneous
  Country: US (occurrence: US)
  Receive Date: 20140421
  Receipt Date: 20140421
  Transmission Date: 20141212
  Serious: No
  Sender: FDA-Public Use
  Company Number: US-SA-2013SA105517

PATIENT
  Age: 72 Year
  Sex: Female

DRUGS (2)
  1. ALLEGRA ALLERGY, 12 HR [Suspect]
     Indication: HYPERSENSITIVITY
     Dosage: TAKEN FROM: 6 WEEKS AGO
     Route: 048
  2. FLONASE [Concomitant]

REACTIONS (1)
  - Drug ineffective [Unknown]
